FAERS Safety Report 8395096 (Version 7)
Quarter: 2013Q4

REPORT INFORMATION
  Report Type: Report from Study
  Country: US (occurrence: US)
  Receive Date: 20120208
  Receipt Date: 20131113
  Transmission Date: 20140711
  Serious: Yes (Other)
  Sender: FDA-Public Use
  Company Number: US-MYLANLABS-2012S1002239

PATIENT
  Age: 20 Year
  Sex: Female

DRUGS (3)
  1. CLARAVIS [Suspect]
     Route: 048
     Dates: start: 20111205
  2. AMNESTEEM CAPSULES [Suspect]
     Route: 048
     Dates: end: 20120119
  3. ORAL CONTRACEPTIVE NOS [Concomitant]
     Indication: CONTRACEPTION
     Route: 048

REACTIONS (2)
  - Exposure during pregnancy [Recovered/Resolved]
  - Headache [Not Recovered/Not Resolved]
